FAERS Safety Report 6640257-X (Version None)
Quarter: 2010Q1

REPORT INFORMATION
  Report Type: 
  Country: None (occurrence: None)
  Receive Date: 20100318
  Receipt Date: 20100308
  Transmission Date: 20100710
  Serious: Yes (Hospitalization)
  Sender: FDA-Public Use
  Company Number: FR-WYE-H14128610

PATIENT
  Age: 83 Year
  Sex: Male

DRUGS (5)
  1. CORDARONE [Suspect]
     Indication: DRUG USE FOR UNKNOWN INDICATION
     Route: 048
     Dates: end: 20090505
  2. CARDENSIEL [Concomitant]
     Indication: DRUG USE FOR UNKNOWN INDICATION
     Route: 048
     Dates: end: 20090505
  3. KAYEXALATE [Concomitant]
     Dosage: UNKNOWN
  4. LASIX SPECIAL [Concomitant]
  5. PLAVIX [Concomitant]
     Dates: end: 20090506

REACTIONS (3)
  - ATRIOVENTRICULAR BLOCK [None]
  - HYPERKALAEMIA [None]
  - NODAL RHYTHM [None]
